FAERS Safety Report 16855376 (Version 2)
Quarter: 2019Q3

REPORT INFORMATION
  Report Type: Spontaneous
  Country: US (occurrence: US)
  Receive Date: 20190926
  Receipt Date: 20190926
  Transmission Date: 20191005
  Serious: Yes (Life-Threatening, Hospitalization, Other)
  Sender: FDA-Public Use
  Company Number: US-PFIZER INC-2019398973

PATIENT
  Age: 31 Year
  Sex: Male

DRUGS (2)
  1. LEVOTHYROXINE SODIUM. [Suspect]
     Active Substance: LEVOTHYROXINE SODIUM
     Dosage: 91 UG, 1X/DAY
     Route: 042
  2. LEVOTHYROXINE SODIUM. [Suspect]
     Active Substance: LEVOTHYROXINE SODIUM
     Indication: HYPOTHYROIDISM
     Dosage: 25 UG, 1X/DAY

REACTIONS (9)
  - Condition aggravated [Recovering/Resolving]
  - Respiratory failure [Recovering/Resolving]
  - Pulseless electrical activity [Recovered/Resolved]
  - Hypotension [Recovering/Resolving]
  - Adrenal insufficiency [Recovering/Resolving]
  - Cardiogenic shock [Recovering/Resolving]
  - Hypoglycaemia [Recovering/Resolving]
  - Adrenocortical insufficiency acute [Recovering/Resolving]
  - Unmasking of previously unidentified disease [Recovering/Resolving]
